FAERS Safety Report 11944438 (Version 6)
Quarter: 2016Q4

REPORT INFORMATION
  Report Type: Report from Study
  Country: BR (occurrence: BR)
  Receive Date: 20160125
  Receipt Date: 20161115
  Transmission Date: 20170206
  Serious: Yes (Other)
  Sender: FDA-Public Use
  Company Number: BR-GLAXOSMITHKLINE-BR2015GSK179745

PATIENT
  Sex: Female
  Weight: 82 kg

DRUGS (3)
  1. BELIMUMAB [Suspect]
     Active Substance: BELIMUMAB
     Dosage: UNK
     Dates: start: 20160803
  2. BELIMUMAB [Suspect]
     Active Substance: BELIMUMAB
     Dosage: UNK
     Dates: start: 20161101
  3. BELIMUMAB [Suspect]
     Active Substance: BELIMUMAB
     Indication: SYSTEMIC LUPUS ERYTHEMATOSUS
     Dosage: UNK
     Dates: start: 20150810

REACTIONS (12)
  - Drug dose omission [Unknown]
  - Drug ineffective [Unknown]
  - Bladder stenosis [Unknown]
  - Skin disorder [Unknown]
  - Urinary tract infection [Unknown]
  - Device occlusion [Unknown]
  - Pleural effusion [Unknown]
  - Skin injury [Unknown]
  - Treatment noncompliance [Unknown]
  - Inappropriate schedule of drug administration [Unknown]
  - Skin haemorrhage [Unknown]
  - Decreased appetite [Unknown]
